FAERS Safety Report 5368582-3 (Version None)
Quarter: 2007Q2

REPORT INFORMATION
  Report Type: 
  Country: None (occurrence: None)
  Receive Date: 20070620
  Receipt Date: 20070608
  Transmission Date: 20071010
  Serious: Yes (Death)
  Sender: FDA-Public Use
  Company Number: DSJ-2007-02854

PATIENT
  Age: 75 Year
  Sex: Male
  Weight: 54 kg

DRUGS (13)
  1. OLMESARTAN MEDOXOMIL [Suspect]
     Indication: ESSENTIAL HYPERTENSION
     Dosage: 10 MG (10 MG,1 IN 1 D), PER ORAL
     Route: 048
     Dates: start: 20061122, end: 20070130
  2. KELNAC       (PLAUNOTOL) (PLAUNOTOL) [Concomitant]
  3. ADALAT [Concomitant]
  4. GLYBURIDE [Concomitant]
  5. SEIBULE           (MIGLITOL) [Concomitant]
  6. ASPIRIN [Concomitant]
  7. LENDORM [Concomitant]
  8. FRANDOL              (ISOSORBIDE DINITRATE) (POULTICE OR PATCH) [Concomitant]
  9. LANSOPRAZOLE [Concomitant]
  10. MARZULENE S (LEVOGLUTAMIDE, SODIUM GUALENATE) [Concomitant]
  11. KAMA (MAGNESIUM OXIDE [Concomitant]
  12. SERMION (NICERGOLINE) [Concomitant]
  13. MEXITIL [Concomitant]

REACTIONS (5)
  - ANAEMIA [None]
  - ANOREXIA [None]
  - CARDIAC FAILURE [None]
  - HYPOTENSION [None]
  - MALNUTRITION [None]
